FAERS Safety Report 23393310 (Version 1)
Quarter: 2024Q1

REPORT INFORMATION
  Report Type: Spontaneous
  Country: US (occurrence: US)
  Receive Date: 20240111
  Receipt Date: 20240111
  Transmission Date: 20240410
  Serious: No
  Sender: FDA-Public Use
  Company Number: US-SA-SAC20240108000156

PATIENT
  Age: 30 Year
  Sex: Female

DRUGS (1)
  1. DUPIXENT [Suspect]
     Active Substance: DUPILUMAB
     Indication: Eosinophilic oesophagitis
     Dosage: UNK
     Route: 058
     Dates: start: 2023, end: 20231201

REACTIONS (5)
  - Rash erythematous [Recovering/Resolving]
  - Burning sensation [Recovering/Resolving]
  - Injection site pain [Recovering/Resolving]
  - Injection site rash [Recovering/Resolving]
  - Arthralgia [Recovering/Resolving]
